FAERS Safety Report 9261849 (Version 2)
Quarter: 2015Q2

REPORT INFORMATION
  Report Type: Spontaneous
  Country: DE (occurrence: DE)
  Receive Date: 20130429
  Receipt Date: 20150604
  Transmission Date: 20150821
  Serious: Yes (Other)
  Sender: FDA-Public Use
  Company Number: DE-PFIZER INC-2013130800

PATIENT
  Age: 58 Year
  Sex: Female

DRUGS (3)
  1. LYRICA [Suspect]
     Active Substance: PREGABALIN
     Dosage: 25 MG, UNK
     Route: 048
     Dates: start: 201208, end: 201304
  2. DUROGESIC SMAT [Concomitant]
     Active Substance: FENTANYL
     Dosage: UNK
     Route: 061
  3. SOTALOL /00371502/ [Concomitant]
     Dosage: 80 MG, UNK
     Route: 048
     Dates: start: 201206

REACTIONS (1)
  - Cystitis [Recovered/Resolved]

NARRATIVE: CASE EVENT DATE: 201212
